FAERS Safety Report 25634099 (Version 5)
Quarter: 2025Q3

REPORT INFORMATION
  Report Type: Report from Study
  Country: ZA (occurrence: ZA)
  Receive Date: 20250801
  Receipt Date: 20250827
  Transmission Date: 20251021
  Serious: Yes (Other)
  Sender: NOVARTIS
  Company Number: ZA-002147023-NVSC2025ZA003245

PATIENT
  Age: 77 Year
  Sex: Female

DRUGS (6)
  1. SIPONIMOD [Suspect]
     Active Substance: SIPONIMOD
     Indication: Secondary progressive multiple sclerosis
     Dosage: 0.5 MG, QD (2 TABLETS) (TITRATION 3)
     Route: 048
     Dates: start: 20250106
  2. SIPONIMOD [Suspect]
     Active Substance: SIPONIMOD
     Indication: Multiple sclerosis
     Dosage: 0.75 MG, QD (4 TABLETS) (TITRATION 4)
     Route: 048
  3. SIPONIMOD [Suspect]
     Active Substance: SIPONIMOD
     Dosage: 1.25 MG, QD (5 TABLETS) (TITRATION 5)
     Route: 048
  4. SIPONIMOD [Suspect]
     Active Substance: SIPONIMOD
     Dosage: 2 MG, QD
     Route: 048
  5. SIPONIMOD [Suspect]
     Active Substance: SIPONIMOD
     Dosage: 2 MG, QMO (STOPPED THE SUNDAY 29 JUNE)
     Route: 048
  6. SIPONIMOD [Suspect]
     Active Substance: SIPONIMOD
     Dosage: 2 MG, QD
     Route: 048

REACTIONS (18)
  - Myocardial infarction [Unknown]
  - Multiple sclerosis [Not Recovered/Not Resolved]
  - Liver disorder [Unknown]
  - Pain [Recovering/Resolving]
  - Dry mouth [Unknown]
  - Dry eye [Unknown]
  - Bladder discomfort [Unknown]
  - Visual impairment [Not Recovered/Not Resolved]
  - Ocular icterus [Unknown]
  - Pulmonary pain [Unknown]
  - Appendix disorder [Unknown]
  - Asthenia [Not Recovered/Not Resolved]
  - Fatigue [Not Recovered/Not Resolved]
  - Memory impairment [Unknown]
  - Musculoskeletal discomfort [Unknown]
  - Gastrointestinal pain [Recovered/Resolved]
  - Chest discomfort [Unknown]
  - Gastrointestinal disorder [Unknown]

NARRATIVE: CASE EVENT DATE: 20250108
